FAERS Safety Report 14835817 (Version 2)
Quarter: 2018Q2

REPORT INFORMATION
  Report Type: Spontaneous
  Country: US (occurrence: US)
  Receive Date: 20180502
  Receipt Date: 20180612
  Transmission Date: 20180711
  Serious: No
  Sender: FDA-Public Use
  Company Number: US-ASTRAZENECA-2018SE49534

PATIENT
  Age: 897 Month
  Sex: Female

DRUGS (8)
  1. CARVEDILOL. [Concomitant]
     Active Substance: CARVEDILOL
     Indication: BLOOD PRESSURE MEASUREMENT
  2. ESBRIET [Concomitant]
     Active Substance: PIRFENIDONE
     Dosage: 6.0DF UNKNOWN
  3. ALENDRONATE SODIUM. [Concomitant]
     Active Substance: ALENDRONATE SODIUM
     Indication: BONE DISORDER
  4. TRIAMTERENE. [Concomitant]
     Active Substance: TRIAMTERENE
     Indication: BLOOD PRESSURE MEASUREMENT
     Dosage: DAILY
  5. TUDORZA PRESSAIR [Suspect]
     Active Substance: ACLIDINIUM BROMIDE
     Indication: PULMONARY FIBROSIS
     Route: 055
     Dates: end: 20180406
  6. OXYGEN. [Concomitant]
     Active Substance: OXYGEN
     Dosage: 5.0L CONTINUOUSLY
     Route: 045
  7. COLESTIPOL [Concomitant]
     Active Substance: COLESTIPOL
     Indication: BOWEL MOVEMENT IRREGULARITY
  8. FLUTICASONE. [Concomitant]
     Active Substance: FLUTICASONE

REACTIONS (8)
  - Fatigue [Unknown]
  - Drug dose omission [Not Recovered/Not Resolved]
  - Cough [Unknown]
  - Device malfunction [Unknown]
  - Nasal discomfort [Unknown]
  - Product use in unapproved indication [Unknown]
  - Off label use [Unknown]
  - Lung disorder [Not Recovered/Not Resolved]

NARRATIVE: CASE EVENT DATE: 201306
